FAERS Safety Report 23257197 (Version 1)
Quarter: 2023Q4

REPORT INFORMATION
  Report Type: Spontaneous
  Country: CA (occurrence: CA)
  Receive Date: 20231204
  Receipt Date: 20231204
  Transmission Date: 20240110
  Serious: Yes (Other)
  Sender: FDA-Public Use
  Company Number: CA-002147023-NVSC2023CA249374

PATIENT
  Age: 44 Year
  Sex: Male

DRUGS (10)
  1. OMALIZUMAB [Suspect]
     Active Substance: OMALIZUMAB
     Indication: Product used for unknown indication
     Route: 065
  2. ALVESCO [Suspect]
     Active Substance: CICLESONIDE
     Indication: Product used for unknown indication
     Dosage: 1 DOSAGE FORM, BID (AEROSOL, METERED DOSE)
     Route: 065
  3. NUCALA [Suspect]
     Active Substance: MEPOLIZUMAB
     Indication: Asthma
     Route: 042
  4. NUCALA [Suspect]
     Active Substance: MEPOLIZUMAB
     Route: 042
  5. NUCALA [Suspect]
     Active Substance: MEPOLIZUMAB
     Route: 042
  6. NUCALA [Suspect]
     Active Substance: MEPOLIZUMAB
     Route: 042
  7. ALBUTEROL [Suspect]
     Active Substance: ALBUTEROL
     Indication: Product used for unknown indication
     Route: 065
  8. ALBUTEROL [Suspect]
     Active Substance: ALBUTEROL
     Route: 065
  9. ALBUTEROL [Suspect]
     Active Substance: ALBUTEROL
     Route: 065
  10. SPIRIVA [Suspect]
     Active Substance: TIOTROPIUM BROMIDE MONOHYDRATE
     Indication: Product used for unknown indication
     Dosage: 1 DOSAGE FORM, BID
     Route: 065

REACTIONS (7)
  - Obstructive airways disorder [Unknown]
  - Wheezing [Unknown]
  - Full blood count abnormal [Unknown]
  - Upper respiratory tract infection [Unknown]
  - Cough [Unknown]
  - Asthma [Unknown]
  - Therapeutic product effect incomplete [Unknown]
